FAERS Safety Report 13899787 (Version 1)
Quarter: 2017Q3

REPORT INFORMATION
  Report Type: Spontaneous
  Country: DE (occurrence: DE)
  Receive Date: 20170823
  Receipt Date: 20170823
  Transmission Date: 20171127
  Serious: Yes (Death)
  Sender: FDA-Public Use
  Company Number: DE-IMPAX LABORATORIES, INC-2017-IPXL-02453

PATIENT
  Age: 30 Year
  Sex: Female

DRUGS (2)
  1. CHLOROQUINE PHOSPHATE. [Suspect]
     Active Substance: CHLOROQUINE PHOSPHATE
     Indication: INTENTIONAL OVERDOSE
  2. CHLOROQUINE PHOSPHATE. [Suspect]
     Active Substance: CHLOROQUINE PHOSPHATE
     Indication: SUICIDE ATTEMPT
     Dosage: UNK
     Route: 065

REACTIONS (3)
  - Completed suicide [Fatal]
  - Blood pressure increased [Fatal]
  - Intentional overdose [Fatal]
